FAERS Safety Report 23522350 (Version 1)
Quarter: 2024Q1

REPORT INFORMATION
  Report Type: Spontaneous
  Country: US (occurrence: US)
  Receive Date: 20240214
  Receipt Date: 20240214
  Transmission Date: 20240410
  Serious: No
  Sender: FDA-Public Use
  Company Number: US-SA-SAC20240209000194

PATIENT
  Sex: Female

DRUGS (12)
  1. DUPIXENT [Suspect]
     Active Substance: DUPILUMAB
     Indication: Neurodermatitis
     Dosage: 300 MG, QOW
     Route: 058
  2. ALBUTEROL SULFATE [Concomitant]
     Active Substance: ALBUTEROL SULFATE
  3. CALTRATE [Concomitant]
     Active Substance: CALCIUM CARBONATE
  4. CLONIDINE HYDROCHLORIDE [Concomitant]
     Active Substance: CLONIDINE HYDROCHLORIDE
  5. IBUPROFEN [Concomitant]
     Active Substance: IBUPROFEN
  6. LISINOPRIL [Concomitant]
     Active Substance: LISINOPRIL
  7. OMEPRAZOLE [Concomitant]
     Active Substance: OMEPRAZOLE
  8. VITAMIN D3 [Concomitant]
     Active Substance: CHOLECALCIFEROL
  9. ALBUTEROL [Concomitant]
     Active Substance: ALBUTEROL
  10. CLONIDINE [Concomitant]
     Active Substance: CLONIDINE
  11. RETINOL [Concomitant]
     Active Substance: RETINOL
  12. B12 ACTIVE [Concomitant]

REACTIONS (7)
  - Gastrointestinal disorder [Not Recovered/Not Resolved]
  - Weight increased [Unknown]
  - Constipation [Unknown]
  - Skin lesion [Unknown]
  - Gastritis [Unknown]
  - Injection site pain [Unknown]
  - Inappropriate schedule of product administration [Unknown]
